FAERS Safety Report 24661421 (Version 1)
Quarter: 2024Q4

REPORT INFORMATION
  Report Type: Report from Study
  Country: AU (occurrence: AU)
  Receive Date: 20241125
  Receipt Date: 20241125
  Transmission Date: 20250114
  Serious: Yes (Death, Other)
  Sender: PFIZER
  Company Number: AU-PFIZER INC-PV202400151883

PATIENT

DRUGS (2)
  1. GEMCITABINE HYDROCHLORIDE [Suspect]
     Active Substance: GEMCITABINE HYDROCHLORIDE
     Indication: Soft tissue sarcoma
     Dosage: 900 MG/M2, OVER 30 MIN ON DAYS 1 AND 8, EVERY 21 DAYS
     Route: 042
  2. DOCETAXEL [Suspect]
     Active Substance: DOCETAXEL
     Indication: Soft tissue sarcoma
     Dosage: 75 MG/M2, OVER 60 MIN ON DAY 8, EVERY 21 DAYS
     Route: 042

REACTIONS (2)
  - Sepsis [Fatal]
  - Pulmonary embolism [Fatal]
